FAERS Safety Report 17450121 (Version 1)
Quarter: 2020Q1

REPORT INFORMATION
  Report Type: Spontaneous
  Country: US (occurrence: US)
  Receive Date: 20200208
  Receipt Date: 20200208
  Transmission Date: 20200409
  Serious: Yes (Hospitalization)
  Sender: FDA-Public Use
  Company Number: None

PATIENT
  Age: 76 Year
  Sex: Male
  Weight: 114 kg

DRUGS (3)
  1. OLANZAPINE. [Suspect]
     Active Substance: OLANZAPINE
     Dates: end: 20200106
  2. ONDANSETRON HCL (ZOFRAN) [Suspect]
     Active Substance: ONDANSETRON HYDROCHLORIDE
     Dates: end: 20200103
  3. DEXAMETHASONE. [Suspect]
     Active Substance: DEXAMETHASONE
     Dates: end: 20200106

REACTIONS (7)
  - Fall [None]
  - Dizziness [None]
  - Taste disorder [None]
  - Pleural effusion [None]
  - Oedema [None]
  - Hypophagia [None]
  - Diarrhoea [None]

NARRATIVE: CASE EVENT DATE: 20200109
